FAERS Safety Report 25087968 (Version 1)
Quarter: 2025Q1

REPORT INFORMATION
  Report Type: Report from Study
  Country: CN (occurrence: CN)
  Receive Date: 20250318
  Receipt Date: 20250318
  Transmission Date: 20250408
  Serious: Yes (Hospitalization)
  Sender: ROCHE
  Company Number: CN-ROCHE-10000229225

PATIENT

DRUGS (6)
  1. RITUXIMAB [Suspect]
     Active Substance: RITUXIMAB
     Indication: Rheumatoid arthritis
     Route: 065
  2. RITUXIMAB [Suspect]
     Active Substance: RITUXIMAB
     Indication: Systemic lupus erythematosus
  3. RITUXIMAB [Suspect]
     Active Substance: RITUXIMAB
     Indication: Myositis
  4. RITUXIMAB [Suspect]
     Active Substance: RITUXIMAB
     Indication: Immunoglobulin G4 related disease
  5. RITUXIMAB [Suspect]
     Active Substance: RITUXIMAB
     Indication: Anti-neutrophil cytoplasmic antibody positive vasculitis
  6. RITUXIMAB [Suspect]
     Active Substance: RITUXIMAB
     Indication: Systemic scleroderma

REACTIONS (1)
  - COVID-19 [Unknown]
